FAERS Safety Report 12255796 (Version 1)
Quarter: 2016Q2

REPORT INFORMATION
  Report Type: Spontaneous
  Country: US (occurrence: None)
  Receive Date: 20160411
  Receipt Date: 20160411
  Transmission Date: 20160815
  Serious: Yes (Other)
  Sender: FDA-Public Use
  Company Number: None

PATIENT
  Age: 59 Year
  Sex: Female
  Weight: 77.11 kg

DRUGS (4)
  1. LEVOFLOXACIN. [Suspect]
     Active Substance: LEVOFLOXACIN
     Indication: DIVERTICULITIS
     Route: 042
     Dates: start: 20160220, end: 20160222
  2. LEVOFLOXACIN. [Suspect]
     Active Substance: LEVOFLOXACIN
     Indication: CYSTITIS
     Route: 042
     Dates: start: 20160220, end: 20160222
  3. ADVIL [Concomitant]
     Active Substance: IBUPROFEN
  4. HYDROCO/APAP [Concomitant]
     Active Substance: ACETAMINOPHEN\HYDROCODONE

REACTIONS (8)
  - Activities of daily living impaired [None]
  - Dysstasia [None]
  - Migraine [None]
  - Tendon disorder [None]
  - Musculoskeletal pain [None]
  - Arthralgia [None]
  - Vomiting [None]
  - Bedridden [None]

NARRATIVE: CASE EVENT DATE: 20160223
